FAERS Safety Report 10109677 (Version 1)
Quarter: 2014Q2

REPORT INFORMATION
  Report Type: Spontaneous
  Country: US (occurrence: US)
  Receive Date: 20140425
  Receipt Date: 20140425
  Transmission Date: 20141212
  Serious: No
  Sender: FDA-Public Use
  Company Number: US-009507513-1404USA012960

PATIENT
  Age: 54 Year
  Sex: Male

DRUGS (5)
  1. PEGINTRON [Suspect]
     Indication: HEPATITIS C
     Dosage: REDIPEN, INJECTION, ONCE A WEEK
     Dates: start: 20140211
  2. REBETOL [Suspect]
     Route: 048
  3. SOVALDI [Concomitant]
  4. ZOLOFT [Concomitant]
  5. TRAMADOL HYDROCHLORIDE [Concomitant]
     Dosage: AS NEEDED

REACTIONS (3)
  - Adverse event [Recovering/Resolving]
  - Fatigue [Recovering/Resolving]
  - Anaemia [Recovering/Resolving]
